FAERS Safety Report 10075939 (Version 1)
Quarter: 2014Q2

REPORT INFORMATION
  Report Type: Spontaneous
  Country: US (occurrence: US)
  Receive Date: 20140414
  Receipt Date: 20140414
  Transmission Date: 20141212
  Serious: Yes (Hospitalization, Other)
  Sender: FDA-Public Use
  Company Number: US-BAYER-2014-050365

PATIENT
  Age: 66 Year
  Sex: Female

DRUGS (4)
  1. CIPRO [Suspect]
     Indication: SINUSITIS
     Dosage: 500 MG, UNK
  2. FLOLAN [Suspect]
     Indication: PULMONARY ARTERIAL HYPERTENSION
     Dosage: UNK
     Route: 042
  3. AVANDIA [Concomitant]
  4. ADCIRCA [Concomitant]

REACTIONS (21)
  - Heart rate decreased [None]
  - Dizziness [None]
  - Dizziness [Not Recovered/Not Resolved]
  - Deafness [Unknown]
  - Feeling abnormal [Unknown]
  - Weight decreased [Unknown]
  - Palpitations [Unknown]
  - Fall [None]
  - Femur fracture [None]
  - Limb injury [None]
  - Localised infection [Unknown]
  - Upper respiratory tract infection [Unknown]
  - Sinusitis [Not Recovered/Not Resolved]
  - Pharyngitis [None]
  - Malaise [Unknown]
  - Decreased appetite [Unknown]
  - Oropharyngeal pain [Unknown]
  - Nausea [Unknown]
  - Medication error [None]
  - Dehydration [Unknown]
  - Fatigue [Unknown]
